FAERS Safety Report 4851952-7 (Version None)
Quarter: 2005Q4

REPORT INFORMATION
  Report Type: 
  Country: None (occurrence: None)
  Receive Date: 20051123
  Receipt Date: 20050916
  Transmission Date: 20060501
  Serious: No
  Sender: FDA-Public Use
  Company Number: 217846

PATIENT
  Sex: Female

DRUGS (1)
  1. RAPTIVA [Suspect]
     Dosage: 0.67 ML, 1/WEEK  ,    1.25 ML
     Dates: start: 20050913

REACTIONS (5)
  - ARTHRALGIA [None]
  - HEADACHE [None]
  - MEDICATION ERROR [None]
  - NAUSEA [None]
  - VOMITING [None]
